FAERS Safety Report 14954732 (Version 1)
Quarter: 2018Q2

REPORT INFORMATION
  Report Type: Spontaneous
  Country: US (occurrence: US)
  Receive Date: 20180530
  Receipt Date: 20180530
  Transmission Date: 20180711
  Serious: Yes (Death)
  Sender: FDA-Public Use
  Company Number: US-HAEMONETICS CORP-2048723

PATIENT
  Age: 57 Year
  Sex: Male
  Weight: 80.91 kg

DRUGS (1)
  1. HAEMONETICS ANTICOAGULANT SODIUM CITRATE [Suspect]
     Active Substance: TRISODIUM CITRATE DIHYDRATE
     Indication: ANTICOAGULANT THERAPY
     Route: 042
     Dates: start: 20151115, end: 20151115

REACTIONS (4)
  - Death [Fatal]
  - Haemorrhage [None]
  - Myocardial infarction [None]
  - Unresponsive to stimuli [None]

NARRATIVE: CASE EVENT DATE: 20151115
